FAERS Safety Report 5734566-6 (Version None)
Quarter: 2008Q2

REPORT INFORMATION
  Report Type: 
  Country: None (occurrence: None)
  Receive Date: 20080508
  Receipt Date: 20080429
  Transmission Date: 20081010
  Serious: Yes (Death)
  Sender: FDA-Public Use
  Company Number: LUP-0277

PATIENT
  Age: 11 Year
  Sex: Male

DRUGS (1)
  1. CEFTRIAXONE [Suspect]
     Indication: PNEUMONIA

REACTIONS (9)
  - ANTIBODY TEST POSITIVE [None]
  - BACK PAIN [None]
  - CEREBRAL HAEMORRHAGE [None]
  - DISSEMINATED INTRAVASCULAR COAGULATION [None]
  - HAEMATOCRIT DECREASED [None]
  - HAEMOGLOBINURIA [None]
  - HAEMOLYSIS [None]
  - HYPOTENSION [None]
  - RENAL FAILURE ACUTE [None]
